FAERS Safety Report 5923329-4 (Version None)
Quarter: 2008Q4

REPORT INFORMATION
  Report Type: 
  Country: None (occurrence: None)
  Receive Date: 20081015
  Receipt Date: 20081003
  Transmission Date: 20090506
  Serious: Yes (Hospitalization, Other)
  Sender: FDA-Public Use
  Company Number: 239111J08USA

PATIENT
  Age: 57 Year
  Sex: Female
  Weight: 64 kg

DRUGS (2)
  1. REBIF [Suspect]
     Indication: MULTIPLE SCLEROSIS
     Dosage: 44 MCG, 3 IN 1 WEEKS, SUBCUTANEOUS
     Route: 058
     Dates: start: 20030508, end: 20080801
  2. ANTIHYPERTENSIVE PILL (ANTIHYPERTENSIVES) [Concomitant]

REACTIONS (3)
  - CORONARY ARTERY OCCLUSION [None]
  - INCISION SITE INFECTION [None]
  - URINARY INCONTINENCE [None]
